FAERS Safety Report 8504128 (Version 5)
Quarter: 2012Q4

REPORT INFORMATION
  Report Type: Report from Study
  Country: BE (occurrence: BE)
  Receive Date: 20120411
  Receipt Date: 20121115
  Transmission Date: 20130627
  Serious: Yes (Hospitalization)
  Sender: FDA-Public Use
  Company Number: BE-ROCHE-1055345

PATIENT
  Age: 76 Year
  Sex: Male

DRUGS (9)
  1. VEMURAFENIB [Suspect]
     Indication: METASTATIC MALIGNANT MELANOMA
     Dosage: Last Dose prior to SAE: 05/Mar/2012
     Route: 048
     Dates: start: 20110914, end: 20120306
  2. VEMURAFENIB [Suspect]
     Route: 048
     Dates: start: 20120309
  3. EXFORGE [Concomitant]
     Dosage: Dose 5/160 mg
     Route: 065
     Dates: start: 2002
  4. DOCSIMVASTA [Concomitant]
     Route: 065
     Dates: start: 1991
  5. ASAFLOW [Concomitant]
     Route: 065
     Dates: start: 1991
  6. ZOMETA [Concomitant]
     Route: 065
     Dates: start: 20110914
  7. PERFUSALGAN [Concomitant]
     Dosage: 1 /premedication Zometa
     Route: 065
     Dates: start: 20110914
  8. PANTOMED [Concomitant]
     Route: 065
     Dates: start: 20111207
  9. BRUFEN [Concomitant]
     Route: 065
     Dates: start: 20120301

REACTIONS (1)
  - Tachycardia [Recovered/Resolved]
